FAERS Safety Report 24329287 (Version 11)
Quarter: 2025Q1

REPORT INFORMATION
  Report Type: Report from Study
  Country: AU (occurrence: AU)
  Receive Date: 20240917
  Receipt Date: 20250318
  Transmission Date: 20250409
  Serious: Yes (Hospitalization, Other)
  Sender: TAKEDA
  Company Number: AU-SA-SAC20240104000880

PATIENT
  Age: 17 Year
  Sex: Male

DRUGS (8)
  1. IDURSULFASE [Suspect]
     Active Substance: IDURSULFASE
     Indication: Mucopolysaccharidosis II
     Dosage: 18 MILLIGRAM, 1/WEEK
  2. IDURSULFASE [Suspect]
     Active Substance: IDURSULFASE
     Dosage: 18 MILLIGRAM, 1/WEEK
     Dates: end: 20240828
  3. IDURSULFASE [Suspect]
     Active Substance: IDURSULFASE
     Dosage: 18 MILLIGRAM, 1/WEEK
     Dates: end: 20241120
  4. IDURSULFASE [Suspect]
     Active Substance: IDURSULFASE
     Dosage: 18 MILLIGRAM, 1/WEEK
     Dates: end: 20250102
  5. IDURSULFASE [Suspect]
     Active Substance: IDURSULFASE
     Dosage: 18 MILLIGRAM, 1/WEEK
  6. IDURSULFASE [Suspect]
     Active Substance: IDURSULFASE
     Dosage: 18 MILLIGRAM, 1/WEEK
     Dates: end: 20250129
  7. HYDROCORTISONE [Concomitant]
     Active Substance: HYDROCORTISONE
     Indication: Premedication
  8. LORATADINE [Concomitant]
     Active Substance: LORATADINE
     Indication: Premedication

REACTIONS (17)
  - General physical health deterioration [Not Recovered/Not Resolved]
  - Rhinovirus infection [Not Recovered/Not Resolved]
  - Malaise [Not Recovered/Not Resolved]
  - Respiratory rate decreased [Unknown]
  - Seizure [Not Recovered/Not Resolved]
  - Chills [Unknown]
  - SARS-CoV-2 test positive [Not Recovered/Not Resolved]
  - Product dispensing error [Unknown]
  - Scratch [Recovered/Resolved]
  - Condition aggravated [Recovered/Resolved]
  - Agitation [Recovered/Resolved]
  - Infusion site reaction [Unknown]
  - Restlessness [Recovered/Resolved]
  - Tremor [Recovered/Resolved]
  - Tachypnoea [Recovered/Resolved]
  - Infusion related reaction [Recovered/Resolved]
  - Urticaria [Recovered/Resolved]

NARRATIVE: CASE EVENT DATE: 20240101
